FAERS Safety Report 9791466 (Version 3)
Quarter: 2014Q1

REPORT INFORMATION
  Report Type: Spontaneous
  Country: AR (occurrence: AR)
  Receive Date: 20140101
  Receipt Date: 20140108
  Transmission Date: 20141002
  Serious: Yes (Hospitalization, Other)
  Sender: FDA-Public Use
  Company Number: PHHY2013AR153201

PATIENT
  Sex: Male

DRUGS (4)
  1. LAPENAX [Suspect]
     Indication: PSYCHOTIC DISORDER
     Dosage: 300 MG, DAILY
     Route: 048
  2. LAPENAX [Suspect]
     Dosage: 450 MG, DAILY
     Route: 048
  3. LAPENAX [Suspect]
     Dosage: 300 MG, DAILY
     Route: 048
  4. LAPENAX [Suspect]
     Dosage: UNK (DOSE ESCALATION, DOSE TAPERING)

REACTIONS (5)
  - Dyskinesia [Recovered/Resolved]
  - Choreoathetosis [Recovered/Resolved]
  - Hypokalaemia [Recovered/Resolved]
  - Psychotic disorder [Unknown]
  - Convulsion [Unknown]
